FAERS Safety Report 23251591 (Version 1)
Quarter: 2023Q4

REPORT INFORMATION
  Report Type: Spontaneous
  Country: US (occurrence: None)
  Receive Date: 20231130
  Receipt Date: 20231130
  Transmission Date: 20240110
  Serious: Yes (Hospitalization)
  Sender: FDA-Public Use
  Company Number: None

PATIENT
  Sex: Male

DRUGS (5)
  1. PANZYGA [Suspect]
     Active Substance: HUMAN IMMUNOGLOBULIN G
     Indication: Product used for unknown indication
     Dosage: FREQUENCY : MONTHLY;?OTHER ROUTE : IV;?
     Route: 050
     Dates: start: 202209
  2. DIPHENHYDRAMINE [Suspect]
     Active Substance: DIPHENHYDRAMINE
     Indication: Product used for unknown indication
     Dosage: OTHER QUANTITY : 25-50MG;?OTHER FREQUENCY : AS NEEDED;?
     Route: 048
     Dates: start: 202209
  3. NORMAL SALINE FLUSH(5ML) [Concomitant]
  4. MYCOPHENOLIC ACID [Concomitant]
     Active Substance: MYCOPHENOLIC ACID
  5. TACROLIMUS(ASCEND) [Concomitant]

REACTIONS (1)
  - COVID-19 [None]
